FAERS Safety Report 7773591-0 (Version None)
Quarter: 2011Q3

REPORT INFORMATION
  Report Type: 
  Country: None (occurrence: None)
  Receive Date: 20110923
  Receipt Date: 20110916
  Transmission Date: 20111222
  Serious: Yes (Hospitalization)
  Sender: FDA-Public Use
  Company Number: US-BIOGENIDEC-2011BI033005

PATIENT
  Age: 57 Year
  Sex: Female

DRUGS (4)
  1. AVONEX [Concomitant]
     Indication: MULTIPLE SCLEROSIS
     Route: 030
     Dates: start: 20031222
  2. TYSABRI [Suspect]
     Route: 042
     Dates: start: 20091031, end: 20101205
  3. TYSABRI [Suspect]
     Indication: MULTIPLE SCLEROSIS
     Route: 042
     Dates: start: 20071211, end: 20090604
  4. TYSABRI [Suspect]
     Route: 042
     Dates: start: 20110506

REACTIONS (6)
  - CONSTIPATION [None]
  - MULTIPLE SCLEROSIS RELAPSE [None]
  - ILEUS [None]
  - URINARY TRACT INFECTION [None]
  - RENAL STONE REMOVAL [None]
  - SPONDYLOLISTHESIS [None]
